FAERS Safety Report 6523842-5 (Version None)
Quarter: 2009Q4

REPORT INFORMATION
  Report Type: 
  Country: None (occurrence: None)
  Receive Date: 20091230
  Receipt Date: 20091230
  Transmission Date: 20100525
  Serious: No
  Sender: FDA-Public Use
  Company Number: None

PATIENT
  Age: 58 Year
  Sex: Male
  Weight: 111.1313 kg

DRUGS (2)
  1. TYLENOL ARTHRITIS 650 MG. TYLENOL [Suspect]
     Indication: PAIN
     Dosage: 2 EVERY 8 HOURS DAILY PO
     Route: 048
     Dates: start: 20091201, end: 20091229
  2. TYLENOL ARTHRITIS 650 MG. TYLENOL [Suspect]
     Indication: PNEUMONIA
     Dosage: 2 EVERY 8 HOURS DAILY PO
     Route: 048
     Dates: start: 20091201, end: 20091229

REACTIONS (2)
  - GASTRIC DISORDER [None]
  - PRODUCT QUALITY ISSUE [None]
